FAERS Safety Report 21291650 (Version 1)
Quarter: 2022Q3

REPORT INFORMATION
  Report Type: Spontaneous
  Country: US (occurrence: US)
  Receive Date: 20220903
  Receipt Date: 20220903
  Transmission Date: 20221026
  Serious: Yes (Other)
  Sender: FDA-Public Use
  Company Number: US-AMGEN-USASP2022147760

PATIENT
  Age: 6 Year
  Sex: Male

DRUGS (5)
  1. INFLIXIMAB [Suspect]
     Active Substance: INFLIXIMAB
     Indication: Colitis
     Route: 065
  2. ADALIMUMAB [Suspect]
     Active Substance: ADALIMUMAB
     Indication: Colitis
     Route: 065
  3. VEDOLIZUMAB [Concomitant]
     Active Substance: VEDOLIZUMAB
     Indication: Colitis
  4. TACROLIMUS [Concomitant]
     Active Substance: TACROLIMUS
     Indication: Colitis
  5. USTEKINUMAB [Concomitant]
     Active Substance: USTEKINUMAB
     Indication: Colitis

REACTIONS (2)
  - Large intestine polyp [Unknown]
  - Drug ineffective [Unknown]
